FAERS Safety Report 23422536 (Version 2)
Quarter: 2024Q1

REPORT INFORMATION
  Report Type: Spontaneous
  Country: BR (occurrence: None)
  Receive Date: 20240119
  Receipt Date: 20240126
  Transmission Date: 20240410
  Serious: Yes (Other)
  Sender: FDA-Public Use
  Company Number: 2024A011504

PATIENT
  Age: 15165 Day
  Sex: Female

DRUGS (3)
  1. ESOMEPRAZOLE [Suspect]
     Active Substance: ESOMEPRAZOLE
     Indication: Erosive oesophagitis
     Dosage: ONCE
     Route: 048
     Dates: start: 20231205, end: 20231216
  2. METHYLDOPA [Concomitant]
     Active Substance: METHYLDOPA
     Indication: Hypertension
  3. METHYLDOPA [Concomitant]
     Active Substance: METHYLDOPA
     Indication: Hypertension

REACTIONS (10)
  - Urticaria [Recovered/Resolved]
  - Erythema [Recovered/Resolved]
  - Hypersensitivity [Recovered/Resolved]
  - Generalised oedema [Recovered/Resolved]
  - Nasal oedema [Recovered/Resolved]
  - Discomfort [Recovered/Resolved]
  - Haematological infection [Recovered/Resolved]
  - C-reactive protein increased [Unknown]
  - Asthenia [Recovered/Resolved]
  - Muscular weakness [Recovered/Resolved]

NARRATIVE: CASE EVENT DATE: 20231214
